FAERS Safety Report 4435973-4 (Version None)
Quarter: 2004Q3

REPORT INFORMATION
  Report Type: 
  Country: None (occurrence: None)
  Receive Date: 20040826
  Receipt Date: 20040816
  Transmission Date: 20050211
  Serious: Yes (Disabling)
  Sender: FDA-Public Use
  Company Number: 02100-USA-02-0312

PATIENT
  Age: 82 Year
  Sex: Female

DRUGS (10)
  1. PLETAL [Suspect]
     Indication: INTERMITTENT CLAUDICATION
     Dosage: 100 MG BID ORAL
     Route: 048
     Dates: start: 20011227, end: 20021024
  2. PLETAL [Suspect]
     Indication: INTERMITTENT CLAUDICATION
     Dosage: 50 MG BID ORAL
     Route: 048
     Dates: start: 20011227, end: 20021024
  3. PLACEBO [Suspect]
     Indication: INTERMITTENT CLAUDICATION
     Dosage: 2 DF BID ORAL
     Route: 048
     Dates: start: 20011227, end: 20021024
  4. PLACEBO [Suspect]
     Indication: INTERMITTENT CLAUDICATION
     Dosage: 1 DF BID ORAL
     Route: 048
     Dates: start: 20011227, end: 20021024
  5. ECOTRIN [Concomitant]
  6. PLAVIX [Concomitant]
  7. NITROGLYCERIN ^A.L.^ [Concomitant]
  8. LIPITOR [Concomitant]
  9. NIFEDIPINE [Concomitant]
  10. TOPROL-XL [Concomitant]

REACTIONS (4)
  - CEREBRAL ATROPHY [None]
  - DEMENTIA [None]
  - DISEASE RECURRENCE [None]
  - HALLUCINATION, VISUAL [None]
